FAERS Safety Report 7482925-6 (Version None)
Quarter: 2011Q2

REPORT INFORMATION
  Report Type: 
  Country: None (occurrence: None)
  Receive Date: 20110516
  Receipt Date: 20110223
  Transmission Date: 20111010
  Serious: No
  Sender: FDA-Public Use
  Company Number: US-BAYER-2011-018524

PATIENT
  Sex: Male
  Weight: 82 kg

DRUGS (1)
  1. ALEVE (CAPLET) [Suspect]
     Indication: PAIN
     Dosage: 1 DF, QD, BOTTLE COUNT 10CT
     Route: 048

REACTIONS (1)
  - NO ADVERSE EVENT [None]
